FAERS Safety Report 17538245 (Version 1)
Quarter: 2020Q1

REPORT INFORMATION
  Report Type: Spontaneous
  Country: DE (occurrence: DE)
  Receive Date: 20200313
  Receipt Date: 20200313
  Transmission Date: 20200409
  Serious: Yes (Disabling, Other)
  Sender: FDA-Public Use
  Company Number: DE-PFIZER INC-2020109507

PATIENT

DRUGS (1)
  1. CYTOTEC [Suspect]
     Active Substance: MISOPROSTOL
     Indication: LABOUR INDUCTION
     Dosage: UNK (8 TIMES OVERDOSE)
     Route: 064
     Dates: start: 20170119, end: 20170121

REACTIONS (2)
  - Foetal exposure during delivery [Unknown]
  - Apparent life threatening event [Recovered/Resolved with Sequelae]

NARRATIVE: CASE EVENT DATE: 20170121
